APPROVED DRUG PRODUCT: TAVABOROLE
Active Ingredient: TAVABOROLE
Strength: 5%
Dosage Form/Route: SOLUTION;TOPICAL
Application: A212215 | Product #001
Applicant: SUN PHARMA CANADA INC
Approved: May 7, 2021 | RLD: No | RS: No | Type: DISCN